FAERS Safety Report 20391383 (Version 1)
Quarter: 2022Q1

REPORT INFORMATION
  Report Type: Other
  Country: CA (occurrence: CA)
  Receive Date: 20220128
  Receipt Date: 20220128
  Transmission Date: 20220423
  Serious: Yes (Other)
  Sender: FDA-Public Use
  Company Number: CA-APOTEX-2022AP002422

PATIENT
  Age: 68 Year
  Sex: Female
  Weight: 89.796 kg

DRUGS (1)
  1. METFORMIN HYDROCHLORIDE [Suspect]
     Active Substance: METFORMIN HYDROCHLORIDE
     Indication: Diabetes mellitus
     Dosage: UNK, QD
     Route: 048

REACTIONS (11)
  - Blister [Recovered/Resolved]
  - Gingival discomfort [Recovered/Resolved]
  - Haemorrhage [Recovered/Resolved]
  - Noninfective gingivitis [Recovered/Resolved]
  - Pain [Recovered/Resolved]
  - Pain of skin [Recovered/Resolved]
  - Pustule [Recovered/Resolved]
  - Swollen tongue [Recovered/Resolved]
  - Headache [Recovered/Resolved]
  - Abdominal distension [Recovered/Resolved]
  - Flatulence [Recovered/Resolved]
